FAERS Safety Report 5139313-7 (Version None)
Quarter: 2006Q4

REPORT INFORMATION
  Report Type: 
  Country: None (occurrence: None)
  Receive Date: 20061024
  Receipt Date: 20061009
  Transmission Date: 20070319
  Serious: Yes (Other)
  Sender: FDA-Public Use
  Company Number: 230974

PATIENT
  Sex: Male

DRUGS (1)
  1. RAPTIVA [Suspect]
     Indication: PSORIASIS
     Dates: start: 20060701

REACTIONS (6)
  - DERMATITIS EXFOLIATIVE [None]
  - DIVERTICULUM INTESTINAL [None]
  - HEPATIC STEATOSIS [None]
  - LYMPHADENOPATHY [None]
  - RASH ERYTHEMATOUS [None]
  - RETROPERITONEAL FIBROSIS [None]
